FAERS Safety Report 15626266 (Version 2)
Quarter: 2019Q4

REPORT INFORMATION
  Report Type: Spontaneous
  Country: US (occurrence: US)
  Receive Date: 20181116
  Receipt Date: 20191121
  Transmission Date: 20200122
  Serious: Yes (Other)
  Sender: FDA-Public Use
  Company Number: US-SA-2018SA002485

PATIENT
  Age: 46 Year
  Sex: Female
  Weight: 113.39 kg

DRUGS (12)
  1. NEOSAR [Concomitant]
     Active Substance: CYCLOPHOSPHAMIDE
  2. ADRIAMYCIN [Concomitant]
     Active Substance: DOXORUBICIN HYDROCHLORIDE
     Route: 065
  3. POTASSIUM [Concomitant]
     Active Substance: POTASSIUM
     Dosage: UNK UNK, UNK
     Route: 065
     Dates: start: 2003, end: 2009
  4. TAXOTERE [Suspect]
     Active Substance: DOCETAXEL
     Dosage: 170-190 MG, Q3W
     Route: 042
     Dates: start: 20060224, end: 20160224
  5. OXYCODONE [Concomitant]
     Active Substance: OXYCODONE
     Dosage: UNK UNK, UNK
     Route: 065
     Dates: start: 2003, end: 2009
  6. TYLENOL [Concomitant]
     Active Substance: ACETAMINOPHEN
  7. DOXORUBICIN [Concomitant]
     Active Substance: DOXORUBICIN
  8. COREG [Concomitant]
     Active Substance: CARVEDILOL
     Dosage: UNK, UNK
     Dates: start: 200401
  9. LASIX [Concomitant]
     Active Substance: FUROSEMIDE
     Dosage: UNK, UNK
     Dates: start: 2003, end: 2009
  10. TAXOTERE [Suspect]
     Active Substance: DOCETAXEL
     Indication: BREAST CANCER FEMALE
     Dosage: 170-190 MG, Q3W
     Route: 042
     Dates: start: 20060113, end: 20060113
  11. K-DUR [Concomitant]
     Active Substance: POTASSIUM CHLORIDE
     Dosage: UNK, UNK
  12. PARACETAMOL [Concomitant]
     Active Substance: ACETAMINOPHEN
     Dosage: UNK UNK, UNK

REACTIONS (1)
  - Alopecia [Recovering/Resolving]

NARRATIVE: CASE EVENT DATE: 200605
